FAERS Safety Report 20909937 (Version 1)
Quarter: 2022Q2

REPORT INFORMATION
  Report Type: Spontaneous
  Country: BR (occurrence: BR)
  Receive Date: 20220603
  Receipt Date: 20220603
  Transmission Date: 20220721
  Serious: Yes (Death)
  Sender: FDA-Public Use
  Company Number: BR-STRIDES ARCOLAB LIMITED-2022SP006415

PATIENT
  Age: 25 Year
  Sex: Female

DRUGS (5)
  1. ETOPOSIDE [Suspect]
     Active Substance: ETOPOSIDE
     Indication: Anaplastic large-cell lymphoma
     Dosage: UNK UNK, CYCLICAL, PART OF CHOEP REGIMEN
     Route: 065
  2. PREDNISOLONE [Suspect]
     Active Substance: PREDNISOLONE
     Indication: Anaplastic large-cell lymphoma
     Dosage: UNK UNK, CYCLICAL, PART OF CHOEP REGIMEN
     Route: 065
  3. DOXORUBICIN [Suspect]
     Active Substance: DOXORUBICIN
     Indication: Anaplastic large-cell lymphoma
     Dosage: UNK UNK, CYCLICAL, PART OF CHOEP REGIMEN
     Route: 065
  4. CYCLOPHOSPHAMIDE [Suspect]
     Active Substance: CYCLOPHOSPHAMIDE
     Indication: Anaplastic large-cell lymphoma
     Dosage: UNK UNK, CYCLICAL, PART OF CHOEP REGIMEN
     Route: 065
  5. VINCRISTINE [Suspect]
     Active Substance: VINCRISTINE
     Indication: Anaplastic large-cell lymphoma
     Dosage: UNK, CYCLICAL, PART OF CHOEP REGIMEN
     Route: 065

REACTIONS (3)
  - Septic shock [Fatal]
  - Drug ineffective [Fatal]
  - Off label use [Unknown]
